FAERS Safety Report 6329212-7 (Version None)
Quarter: 2009Q3

REPORT INFORMATION
  Report Type: 
  Country: None (occurrence: None)
  Receive Date: 20090825
  Receipt Date: 20090825
  Transmission Date: 20100115
  Serious: Yes (Death)
  Sender: FDA-Public Use
  Company Number: None

PATIENT
  Sex: Male

DRUGS (14)
  1. REVLIMID [Suspect]
     Indication: MULTIPLE MYELOMA
     Dosage: 10 MG DAILY X21D ON, 7D OFF ORAL
     Route: 048
     Dates: start: 20060801, end: 20090312
  2. PROCRIT [Concomitant]
  3. LISINOPRIL [Concomitant]
  4. NEURONTIN [Concomitant]
  5. METFORMIN HCL [Concomitant]
  6. ACTOS [Concomitant]
  7. TERAZOSIN HCL [Concomitant]
  8. LANOXIN [Concomitant]
  9. WARFARIN [Concomitant]
  10. PREDNISONE TAB [Concomitant]
  11. LOVASTATIN [Concomitant]
  12. BISOPROLOL [Concomitant]
  13. NITROSTAT [Concomitant]
  14. VICODIN [Concomitant]

REACTIONS (2)
  - DISEASE PROGRESSION [None]
  - MULTIPLE MYELOMA [None]
